FAERS Safety Report 15453041 (Version 2)
Quarter: 2018Q4

REPORT INFORMATION
  Report Type: Spontaneous
  Country: US (occurrence: US)
  Receive Date: 20181001
  Receipt Date: 20181120
  Transmission Date: 20190204
  Serious: Yes (Death, Life-Threatening)
  Sender: FDA-Public Use
  Company Number: US-TASMAN PHARMA, INC.-2018TSM00120

PATIENT
  Age: 30 Year
  Sex: Male
  Weight: 84.81 kg

DRUGS (3)
  1. DEPOKOTE [Concomitant]
     Dosage: 500 MG, 2X/DAY
  2. CLOZAPINE. [Suspect]
     Active Substance: CLOZAPINE
     Indication: SCHIZOPHRENIA
     Dosage: 25 MG, 2X/DAY
     Dates: start: 20180803, end: 20180907
  3. HALDOL [Suspect]
     Active Substance: HALOPERIDOL
     Dosage: 5 MG, 3X/DAY
     Route: 048

REACTIONS (2)
  - Unresponsive to stimuli [Not Recovered/Not Resolved]
  - Death [Fatal]

NARRATIVE: CASE EVENT DATE: 20180907
